FAERS Safety Report 21674690 (Version 4)
Quarter: 2023Q2

REPORT INFORMATION
  Report Type: Spontaneous
  Country: JP (occurrence: JP)
  Receive Date: 20221202
  Receipt Date: 20230410
  Transmission Date: 20230721
  Serious: Yes (Death, Other)
  Sender: FDA-Public Use
  Company Number: JP-PFIZER INC-PV202200114730

PATIENT
  Age: 73 Year
  Sex: Female
  Weight: 37.5 kg

DRUGS (1)
  1. PAXLOVID [Suspect]
     Active Substance: NIRMATRELVIR\RITONAVIR
     Indication: COVID-19 treatment
     Dosage: UNK (TOOK PF-07321332, RITONAVIR ONLY ONCE IN THE EVENING)
     Route: 048
     Dates: start: 20221129, end: 20221129

REACTIONS (4)
  - COVID-19 [Fatal]
  - COVID-19 pneumonia [Fatal]
  - Loss of consciousness [Unknown]
  - Blood pressure diastolic decreased [Unknown]

NARRATIVE: CASE EVENT DATE: 20221101
